FAERS Safety Report 4872077-0 (Version None)
Quarter: 2006Q1

REPORT INFORMATION
  Report Type: 
  Country: None (occurrence: None)
  Receive Date: 20060104
  Receipt Date: 20051230
  Transmission Date: 20060701
  Serious: Yes (Hospitalization, Disabling)
  Sender: FDA-Public Use
  Company Number: PHRM2005FR03414

PATIENT
  Age: 79 Year
  Sex: Female

DRUGS (8)
  1. ALKERAN [Concomitant]
     Indication: BREAST CANCER
     Dosage: UNK, UNK
     Dates: start: 20041101
  2. SOLU-MEDROL [Concomitant]
     Dosage: UNK, UNK
     Dates: start: 20041101
  3. AVLOCARDYL [Concomitant]
     Dosage: UNK, UNK
     Dates: start: 20041101
  4. FEMARA [Concomitant]
     Route: 048
  5. ESOMEPRAZOLE [Concomitant]
  6. LEXOMIL [Concomitant]
  7. AREDIA [Suspect]
     Indication: BREAST CANCER
     Dosage: 90 MG, QMO
     Dates: end: 20050101
  8. ZOMETA [Suspect]
     Indication: BREAST CANCER
     Dosage: 4 MG, QMO
     Route: 042
     Dates: start: 20040209

REACTIONS (2)
  - OSTEONECROSIS [None]
  - PAIN IN JAW [None]
